FAERS Safety Report 11968324 (Version 1)
Quarter: 2016Q1

REPORT INFORMATION
  Report Type: Report from Study
  Country: CA (occurrence: CA)
  Receive Date: 20160128
  Receipt Date: 20160128
  Transmission Date: 20160526
  Serious: Yes (Other)
  Sender: FDA-Public Use
  Company Number: CA-AMGEN-CANSL2016008200

PATIENT
  Age: 61 Year

DRUGS (1)
  1. ENBREL [Suspect]
     Active Substance: ETANERCEPT
     Indication: PSORIATIC ARTHROPATHY
     Dosage: 50 MG, UNK
     Route: 065
     Dates: start: 20040929

REACTIONS (3)
  - Pain in extremity [Unknown]
  - Psoriatic arthropathy [Unknown]
  - Foot operation [Unknown]

NARRATIVE: CASE EVENT DATE: 201506
